FAERS Safety Report 20351323 (Version 2)
Quarter: 2022Q1

REPORT INFORMATION
  Report Type: Report from Study
  Country: US (occurrence: US)
  Receive Date: 20220119
  Receipt Date: 20220127
  Transmission Date: 20220423
  Serious: No
  Sender: FDA-Public Use
  Company Number: US-LUNDBECK-DKLU3043342

PATIENT
  Age: 28 Year
  Sex: Female

DRUGS (1)
  1. VYEPTI [Suspect]
     Active Substance: EPTINEZUMAB-JJMR
     Indication: Migraine
     Route: 041
     Dates: start: 202112

REACTIONS (4)
  - Memory impairment [Not Recovered/Not Resolved]
  - Migraine [Not Recovered/Not Resolved]
  - Dizziness [Not Recovered/Not Resolved]
  - Therapeutic product effect decreased [Unknown]

NARRATIVE: CASE EVENT DATE: 20220113
